FAERS Safety Report 7023600-1 (Version None)
Quarter: 2010Q3

REPORT INFORMATION
  Report Type: 
  Country: None (occurrence: None)
  Receive Date: 20100930
  Receipt Date: 20100921
  Transmission Date: 20110219
  Serious: Yes (Disabling)
  Sender: FDA-Public Use
  Company Number: SE-B.I. PHARMACEUTICALS,INC./RIDGEFIELD-2010-SW-00252SW

PATIENT
  Sex: Female

DRUGS (14)
  1. SIFROL TAB [Suspect]
     Indication: RESTLESS LEGS SYNDROME
     Dosage: 0.18 MG
     Dates: start: 20050101, end: 20100801
  2. SIFROL TAB [Suspect]
     Dosage: 1.05 MG
  3. SIFROL TAB [Suspect]
     Dosage: DAILY DOSE: 1/2 TABLET
  4. DIAZEPAM [Concomitant]
     Indication: MUSCLE SPASMS
     Dosage: 10 MG
  5. PROPAVAN [Concomitant]
     Indication: SLEEP DISORDER
  6. IMOVANE [Concomitant]
     Indication: SLEEP DISORDER
     Dosage: 7.5 MG
  7. MAROTT [Concomitant]
     Indication: PAIN
     Dosage: FORM AND ROUTE: INJECTION
  8. MINIFOM [Concomitant]
     Indication: FLATULENCE
  9. SYMBICORT [Concomitant]
     Indication: ASTHMA
     Route: 055
  10. OMEPRAZOLE [Concomitant]
     Indication: ABDOMINAL DISCOMFORT
  11. PRESDNISOLON [Concomitant]
     Indication: PAIN
     Dosage: 0.5 MG
     Dates: start: 20100501
  12. NEURONTIN [Concomitant]
     Indication: NEURALGIA
     Dosage: 1800 MG
  13. TRADOLAN [Concomitant]
     Indication: PAIN
     Dosage: 300 MG
  14. EXFO [Concomitant]
     Indication: OSTEOARTHRITIS
     Dosage: 0.8 MG
     Dates: start: 20000101

REACTIONS (6)
  - DEPRESSION [None]
  - HYPOAESTHESIA [None]
  - PAIN IN EXTREMITY [None]
  - PARAESTHESIA [None]
  - PATHOLOGICAL GAMBLING [None]
  - WITHDRAWAL SYNDROME [None]
